FAERS Safety Report 20171407 (Version 1)
Quarter: 2021Q4

REPORT INFORMATION
  Report Type: Spontaneous
  Country: IT (occurrence: None)
  Receive Date: 20211209
  Receipt Date: 20211209
  Transmission Date: 20220303
  Serious: No
  Sender: FDA-Public Use
  Company Number: None

PATIENT
  Age: 51 Year

DRUGS (3)
  1. OMNIPAQUE [Suspect]
     Active Substance: IOHEXOL
     Indication: Computerised tomogram
     Dates: start: 20211102
  2. MAALOX ANTACID [Concomitant]
     Active Substance: ALUMINUM HYDROXIDE\DIMETHICONE\MAGNESIUM HYDROXIDE
  3. CARAFATE [Concomitant]
     Active Substance: SUCRALFATE

REACTIONS (5)
  - Rash [None]
  - Rash pruritic [None]
  - Dyspnoea [None]
  - Swelling face [None]
  - Rash erythematous [None]

NARRATIVE: CASE EVENT DATE: 20211102
